FAERS Safety Report 6862344-3 (Version None)
Quarter: 2010Q3

REPORT INFORMATION
  Report Type: 
  Country: None (occurrence: None)
  Receive Date: 20100721
  Receipt Date: 20100330
  Transmission Date: 20110219
  Serious: Yes (Other)
  Sender: FDA-Public Use
  Company Number: US-JNJFOC-20100703837

PATIENT
  Age: 67 Year
  Sex: Male

DRUGS (8)
  1. PREZISTA [Suspect]
     Indication: HIV INFECTION
     Route: 048
  2. TRUVADA [Suspect]
     Indication: HIV INFECTION
     Route: 065
  3. NORVIR [Suspect]
     Indication: HIV INFECTION
     Route: 065
  4. ISENTRESS [Suspect]
     Indication: HIV INFECTION
     Route: 065
  5. ISENTRESS [Suspect]
     Route: 065
  6. SELZENTRY [Suspect]
     Indication: HIV INFECTION
     Route: 065
  7. SELZENTRY [Suspect]
     Route: 065
  8. PROTON PUMP INHIBITOR [Concomitant]

REACTIONS (1)
  - RENAL FAILURE [None]
